FAERS Safety Report 6056210-3 (Version None)
Quarter: 2009Q1

REPORT INFORMATION
  Report Type: 
  Country: None (occurrence: None)
  Receive Date: 20090129
  Receipt Date: 20090126
  Transmission Date: 20090719
  Serious: Yes (Other)
  Sender: FDA-Public Use
  Company Number: GB-JNJFOC-20080606429

PATIENT
  Sex: Male

DRUGS (3)
  1. OXYBUTYNIN CHLORIDE [Suspect]
     Route: 048
  2. OXYBUTYNIN CHLORIDE [Suspect]
     Indication: ENURESIS
     Route: 048
  3. DESMOMELT [Concomitant]
     Indication: ENURESIS
     Route: 065

REACTIONS (5)
  - AGGRESSION [None]
  - FATIGUE [None]
  - MOOD SWINGS [None]
  - SPEECH DISORDER [None]
  - SUICIDAL IDEATION [None]
